FAERS Safety Report 14609386 (Version 1)
Quarter: 2018Q1

REPORT INFORMATION
  Report Type: Spontaneous
  Country: US (occurrence: US)
  Receive Date: 20180307
  Receipt Date: 20180307
  Transmission Date: 20180509
  Serious: Yes (Other)
  Sender: FDA-Public Use
  Company Number: US-TEVA-2018-US-865886

PATIENT

DRUGS (2)
  1. RISEDRONIC ACID [Suspect]
     Active Substance: RISEDRONIC ACID
     Indication: DEAFNESS NEUROSENSORY
  2. RISEDRONIC ACID [Suspect]
     Active Substance: RISEDRONIC ACID
     Indication: OTOSCLEROSIS
     Dosage: ORAL, 35 MG OF WEEKLY RISEDRONATE
     Route: 048

REACTIONS (1)
  - Deafness neurosensory [Not Recovered/Not Resolved]
